FAERS Safety Report 4546816-2 (Version None)
Quarter: 2005Q1

REPORT INFORMATION
  Report Type: 
  Country: None (occurrence: None)
  Receive Date: 20050105
  Receipt Date: 20041228
  Transmission Date: 20050727
  Serious: Yes (Hospitalization)
  Sender: FDA-Public Use
  Company Number: 2004117687

PATIENT
  Age: 75 Year
  Sex: Female

DRUGS (7)
  1. SPIRONOLACTONE [Suspect]
     Indication: CARDIAC FAILURE
     Dosage: 20 MG ORAL
     Route: 048
     Dates: end: 20040606
  2. DILTIAZEM HYDROCHLORIDE [Suspect]
     Indication: HYPERTENSION
     Dosage: 300 MG (300 MG, QD), ORAL
     Route: 048
     Dates: end: 20040608
  3. VALSARTAN (VALSARTAN) [Suspect]
     Indication: HYPERTENSION
     Dosage: 1 UNITS (QD), ORAL
     Route: 048
     Dates: start: 20040115
  4. ATENOLOL [Suspect]
     Indication: HYPERTENSION
     Dosage: 100 MG (100 MG, QD), ORAL
     Route: 048
     Dates: end: 20040611
  5. FUROSEMIDE (FUROSEMIDE) [Suspect]
     Indication: CARDIAC FAILURE
     Dosage: 50 MG, ORAL
     Route: 048
     Dates: end: 20040606
  6. SIMVASTATIN [Concomitant]
  7. CITALOPRAM HYDROBROMIDE [Concomitant]

REACTIONS (2)
  - MALAISE [None]
  - ORTHOSTATIC HYPOTENSION [None]
